FAERS Safety Report 12928590 (Version 1)
Quarter: 2016Q4

REPORT INFORMATION
  Report Type: Spontaneous
  Country: US (occurrence: US)
  Receive Date: 20161110
  Receipt Date: 20161110
  Transmission Date: 20170207
  Serious: Yes (Hospitalization)
  Sender: FDA-Public Use
  Company Number: US-UNITED THERAPEUTICS-UNT-2016-017116

PATIENT
  Sex: Female

DRUGS (2)
  1. REMODULIN [Suspect]
     Active Substance: TREPROSTINIL
     Indication: PULMONARY ARTERIAL HYPERTENSION
     Dosage: 0.015 ?G/KG, CONTINUING
     Route: 041
     Dates: start: 20160406
  2. REMODULIN [Suspect]
     Active Substance: TREPROSTINIL
     Dosage: 0.0144 ?G/KG, CONTINUING
     Route: 041
     Dates: start: 201605

REACTIONS (2)
  - Device related infection [Unknown]
  - Device breakage [Unknown]

NARRATIVE: CASE EVENT DATE: 20161102
